FAERS Safety Report 23820792 (Version 1)
Quarter: 2024Q2

REPORT INFORMATION
  Report Type: Spontaneous
  Country: US (occurrence: None)
  Receive Date: 20240503
  Receipt Date: 20240503
  Transmission Date: 20240716
  Serious: Yes (Hospitalization)
  Sender: FDA-Public Use
  Company Number: None

PATIENT
  Age: 75 Year
  Sex: Male

DRUGS (13)
  1. TADALAFIL [Suspect]
     Active Substance: TADALAFIL
     Indication: Pulmonary arterial hypertension
     Dosage: 20MG QD ORAL
     Route: 048
     Dates: start: 20220210, end: 20240424
  2. Tyvaso DPI [Concomitant]
  3. METFORMIN [Concomitant]
  4. OMEPRAZOLE [Concomitant]
  5. ATORVASTATIN [Concomitant]
  6. Humulin N 70/30 [Concomitant]
  7. FUROSEMIDE [Concomitant]
  8. AMLODIPINE [Concomitant]
  9. Caredilol [Concomitant]
  10. Alvesco HFA [Concomitant]
  11. FERROUS SULFATE [Concomitant]
  12. LOSARTAN [Concomitant]
  13. Aspirin [Concomitant]

REACTIONS (1)
  - Pulmonary veno-occlusive disease [None]

NARRATIVE: CASE EVENT DATE: 20240404
